FAERS Safety Report 19476714 (Version 1)
Quarter: 2021Q2

REPORT INFORMATION
  Report Type: Report from Study
  Country: PL (occurrence: PL)
  Receive Date: 20210630
  Receipt Date: 20210630
  Transmission Date: 20210717
  Serious: Yes (Other)
  Sender: FDA-Public Use
  Company Number: PL-SUN PHARMACEUTICAL INDUSTRIES LTD-2021R1-302332

PATIENT
  Age: 19 Year
  Sex: Male

DRUGS (2)
  1. PREDNISONE. [Suspect]
     Active Substance: PREDNISONE
     Dosage: 0.6 MILLIGRAM/KILOGRAM
     Route: 065
  2. PREDNISONE. [Suspect]
     Active Substance: PREDNISONE
     Indication: IDIOPATHIC INTERSTITIAL PNEUMONIA
     Dosage: 2 MILLIGRAM/KILOGRAM
     Route: 065

REACTIONS (1)
  - Therapy partial responder [Unknown]
